FAERS Safety Report 6157803-5 (Version None)
Quarter: 2009Q2

REPORT INFORMATION
  Report Type: 
  Country: None (occurrence: None)
  Receive Date: 20090414
  Receipt Date: 20090330
  Transmission Date: 20091009
  Serious: Yes (Hospitalization, Other)
  Sender: FDA-Public Use
  Company Number: PERC20090055

PATIENT
  Age: 67 Year
  Sex: Female

DRUGS (12)
  1. PERCOCET [Suspect]
     Indication: PAIN
     Dosage: 1-2TABS Q6H PRN, ORAL
     Route: 048
     Dates: start: 20071110
  2. FENTANYL [Suspect]
     Indication: BACK PAIN
     Dosage: 100 MCG, 1 PATCH EVERY 3 DAYS, TRANSDERMAL
     Route: 062
     Dates: start: 20081101, end: 20090303
  3. FENTANYL-75 [Suspect]
     Indication: BACK PAIN
     Dosage: 75 MCG, 1 PATCH EVERY 3 DAYS, TRANSDERMAL
     Route: 062
     Dates: start: 20070801, end: 20081101
  4. XANAX [Suspect]
     Indication: DEPRESSION
     Dosage: 1 MG, QHS, ORAL
     Route: 048
     Dates: start: 20071121
  5. NEFAZODONE HCL [Concomitant]
  6. CELEBREX [Concomitant]
  7. KENALOG [Concomitant]
  8. MARCAINE [Concomitant]
  9. PREVACID [Concomitant]
  10. GABAPENTIN [Concomitant]
  11. CEFDINIR [Concomitant]
  12. ALLEGRA [Concomitant]

REACTIONS (17)
  - BURSITIS [None]
  - CELLULITIS [None]
  - CONSTIPATION [None]
  - DEPRESSION [None]
  - DIARRHOEA [None]
  - DIZZINESS [None]
  - DRUG EFFECT DECREASED [None]
  - DRUG WITHDRAWAL SYNDROME [None]
  - FALL [None]
  - HUMERUS FRACTURE [None]
  - INTENTIONAL DRUG MISUSE [None]
  - JOINT DISLOCATION [None]
  - MALAISE [None]
  - OPEN REDUCTION OF FRACTURE [None]
  - PRODUCT QUALITY ISSUE [None]
  - SCAR [None]
  - SKIN LACERATION [None]
